FAERS Safety Report 5272574-2 (Version None)
Quarter: 2007Q1

REPORT INFORMATION
  Report Type: 
  Country: None (occurrence: None)
  Receive Date: 20070319
  Receipt Date: 20070313
  Transmission Date: 20070707
  Serious: Yes (Other)
  Sender: FDA-Public Use
  Company Number: 2007SP003018

PATIENT
  Age: 29 Year
  Sex: Male
  Weight: 86.5463 kg

DRUGS (5)
  1. TEMODAR [Suspect]
     Indication: BRAIN NEOPLASM
     Dosage: 360 MG; HS; PO
     Route: 048
     Dates: start: 20050301, end: 20051101
  2. KEPPRA [Concomitant]
  3. POTASSIUM ACETATE [Concomitant]
  4. LASIX [Concomitant]
  5. DECADRON [Concomitant]

REACTIONS (1)
  - BONE INFARCTION [None]
